FAERS Safety Report 12178191 (Version 1)
Quarter: 2016Q1

REPORT INFORMATION
  Report Type: Spontaneous
  Country: US (occurrence: None)
  Receive Date: 20160314
  Receipt Date: 20160314
  Transmission Date: 20160526
  Serious: Yes (Life-Threatening, Hospitalization)
  Sender: FDA-Public Use
  Company Number: None

PATIENT
  Age: 54 Year
  Sex: Female
  Weight: 86 kg

DRUGS (3)
  1. LANTUS [Suspect]
     Active Substance: INSULIN GLARGINE
  2. EMPAGLIFLOZIN 10MG BOEHRINGER INGELHEIM PHARMACEUTICA [Suspect]
     Active Substance: EMPAGLIFLOZIN
     Dosage: GRETAER THAN 1 YAER
  3. ALBIGLUTIDE [Concomitant]
     Active Substance: ALBIGLUTIDE
     Dosage: }1 YEAR

REACTIONS (1)
  - Diabetic ketoacidosis [None]

NARRATIVE: CASE EVENT DATE: 20160312
